FAERS Safety Report 7026981-8 (Version None)
Quarter: 2010Q4

REPORT INFORMATION
  Report Type: 
  Country: None (occurrence: None)
  Receive Date: 20101004
  Receipt Date: 20100923
  Transmission Date: 20110411
  Serious: Yes (Hospitalization)
  Sender: FDA-Public Use
  Company Number: ES-JNJFOC-20100907757

PATIENT
  Age: 58 Year
  Sex: Male

DRUGS (2)
  1. INFLIXIMAB, RECOMBINANT [Suspect]
     Indication: PSORIASIS
     Dosage: RECEIVED 4 DOSES TOTAL
     Route: 042
  2. HUMIRA [Suspect]
     Indication: PSORIASIS

REACTIONS (2)
  - DRUG EFFECT DECREASED [None]
  - LUNG NEOPLASM [None]
